FAERS Safety Report 25480202 (Version 1)
Quarter: 2025Q2

REPORT INFORMATION
  Report Type: Spontaneous
  Country: US (occurrence: None)
  Receive Date: 20250623
  Receipt Date: 20250623
  Transmission Date: 20250716
  Serious: Yes (Disabling, Other)
  Sender: FDA-CTU
  Company Number: None

PATIENT
  Age: 59 Year
  Sex: Female

DRUGS (3)
  1. DULOXETINE [Suspect]
     Active Substance: DULOXETINE
     Indication: Panic attack
     Dosage: FREQUENCY : DAILY;?
     Route: 048
     Dates: start: 20150101
  2. ONDANSETRON HYDROCHLORIDE [Concomitant]
     Active Substance: ONDANSETRON HYDROCHLORIDE
  3. XANAX [Concomitant]
     Active Substance: ALPRAZOLAM

REACTIONS (17)
  - Fall [None]
  - Sexual dysfunction [None]
  - Liver injury [None]
  - Mood altered [None]
  - Paraesthesia [None]
  - Tinnitus [None]
  - Rhinorrhoea [None]
  - Neuropathy peripheral [None]
  - Akathisia [None]
  - Essential tremor [None]
  - Brain fog [None]
  - Dry mouth [None]
  - Dry mouth [None]
  - Hypotension [None]
  - Somnolence [None]
  - Suicidal ideation [None]
  - Drug withdrawal syndrome [None]

NARRATIVE: CASE EVENT DATE: 20240401
